FAERS Safety Report 12037540 (Version 1)
Quarter: 2016Q1

REPORT INFORMATION
  Report Type: Spontaneous
  Country: TR (occurrence: TR)
  Receive Date: 20160208
  Receipt Date: 20160208
  Transmission Date: 20160526
  Serious: Yes (Hospitalization)
  Sender: FDA-Public Use
  Company Number: PHHY2016TR013617

PATIENT
  Age: 47 Year
  Sex: Female
  Weight: 80 kg

DRUGS (4)
  1. BELOC-ZOK [Concomitant]
     Active Substance: METOPROLOL SUCCINATE
     Indication: PRODUCT USED FOR UNKNOWN INDICATION
     Dosage: 1X1
     Route: 048
  2. INSULIN [Concomitant]
     Active Substance: INSULIN NOS
     Indication: DIABETES MELLITUS
     Dosage: 4X1
     Route: 058
  3. SIGNIFOR [Suspect]
     Active Substance: PASIREOTIDE
     Indication: PITUITARY-DEPENDENT CUSHING^S SYNDROME
     Dosage: 0.6 MG, 2X1
     Route: 058
     Dates: start: 20151222
  4. GALVUSMET [Concomitant]
     Indication: PRODUCT USED FOR UNKNOWN INDICATION
     Dosage: 2X1
     Route: 048

REACTIONS (1)
  - Eyelid ptosis [Recovering/Resolving]

NARRATIVE: CASE EVENT DATE: 20160127
